FAERS Safety Report 5750108-3 (Version None)
Quarter: 2008Q2

REPORT INFORMATION
  Report Type: 
  Country: None (occurrence: None)
  Receive Date: 20080522
  Receipt Date: 20080522
  Transmission Date: 20081010
  Serious: Yes (Hospitalization)
  Sender: FDA-Public Use
  Company Number: None

PATIENT
  Sex: Male
  Weight: 95 kg

DRUGS (4)
  1. FLUOROURACIL [Suspect]
     Dosage: 12720 MG
     Dates: end: 20080430
  2. BEVACIZUMAB (RHUMAB VEGF) [Suspect]
     Dosage: 1900 MG
     Dates: end: 20080430
  3. IRINOTECAN HCL [Suspect]
     Dosage: 800 MG
     Dates: end: 20080430
  4. LEUCOVORIN CALCIUM [Suspect]
     Dosage: 3200 MG
     Dates: end: 20080430

REACTIONS (3)
  - DYSPNOEA EXERTIONAL [None]
  - NEUTROPHIL COUNT DECREASED [None]
  - PNEUMONIA [None]
